FAERS Safety Report 12432221 (Version 1)
Quarter: 2016Q2

REPORT INFORMATION
  Report Type: Spontaneous
  Country: US (occurrence: US)
  Receive Date: 20160603
  Receipt Date: 20160603
  Transmission Date: 20160815
  Serious: Yes (Other)
  Sender: FDA-Public Use
  Company Number: US-ACTAVIS-2016-11467

PATIENT
  Age: 55 Year
  Sex: Male

DRUGS (6)
  1. HALOPERIDOL (WATSON LABORATORIES) [Suspect]
     Active Substance: HALOPERIDOL
     Indication: AGITATION
     Dosage: 5 MG, PRN (EVERY HOUR AS NEEDED)
     Route: 048
  2. HALOPERIDOL (WATSON LABORATORIES) [Suspect]
     Active Substance: HALOPERIDOL
     Dosage: 2 MG, PRN (EVERY HOUR AS NEEDED)
     Route: 042
  3. CEFTRIAXONE. [Concomitant]
     Active Substance: CEFTRIAXONE
     Indication: STREPTOCOCCAL BACTERAEMIA
     Dosage: 2 G, DAILY
     Route: 042
  4. RISPERIDONE (WATSON LABORATORIES) [Suspect]
     Active Substance: RISPERIDONE
     Indication: AGITATION
     Dosage: 0.25 MG, QHS
     Route: 048
  5. PRAZOSIN [Concomitant]
     Active Substance: PRAZOSIN
     Indication: AGITATION
     Dosage: 1 MG, BID
     Route: 048
  6. CEFTRIAXONE. [Concomitant]
     Active Substance: CEFTRIAXONE
     Indication: ACUTE ENDOCARDITIS

REACTIONS (2)
  - Dysphagia [Recovering/Resolving]
  - Cogwheel rigidity [Recovering/Resolving]
